FAERS Safety Report 24555008 (Version 1)
Quarter: 2024Q4

REPORT INFORMATION
  Report Type: Spontaneous
  Country: US (occurrence: US)
  Receive Date: 20241028
  Receipt Date: 20241028
  Transmission Date: 20250114
  Serious: No
  Sender: ACCORD
  Company Number: US-Accord-441537

PATIENT

DRUGS (1)
  1. REGADENOSON [Suspect]
     Active Substance: REGADENOSON
     Indication: Product used for unknown indication

REACTIONS (2)
  - Injury associated with device [Unknown]
  - Device breakage [Unknown]
